FAERS Safety Report 8396085-0 (Version None)
Quarter: 2012Q2

REPORT INFORMATION
  Report Type: 
  Country: None (occurrence: None)
  Receive Date: 20120530
  Receipt Date: 20120315
  Transmission Date: 20120825
  Serious: No
  Sender: FDA-Public Use
  Company Number: US-ASTRAZENECA-2012SE20625

PATIENT
  Sex: Female

DRUGS (1)
  1. PRILOSEC OTC [Suspect]
     Route: 048
     Dates: start: 20120312

REACTIONS (4)
  - NASAL CONGESTION [None]
  - DYSPNOEA [None]
  - WHEEZING [None]
  - PRODUCT TASTE ABNORMAL [None]
